FAERS Safety Report 13621853 (Version 1)
Quarter: 2017Q2

REPORT INFORMATION
  Report Type: Spontaneous
  Country: US (occurrence: US)
  Receive Date: 20170607
  Receipt Date: 20170607
  Transmission Date: 20170830
  Serious: No
  Sender: FDA-Public Use
  Company Number: US-ROCHE-1914470

PATIENT
  Sex: Female

DRUGS (1)
  1. KLONOPIN [Suspect]
     Active Substance: CLONAZEPAM
     Indication: ESSENTIAL TREMOR
     Dosage: YES
     Route: 048

REACTIONS (3)
  - Muscle twitching [Unknown]
  - Stress [Unknown]
  - Somnolence [Unknown]
